FAERS Safety Report 5099738-5 (Version None)
Quarter: 2006Q3

REPORT INFORMATION
  Report Type: 
  Country: None (occurrence: None)
  Receive Date: 20060908
  Receipt Date: 20060828
  Transmission Date: 20061208
  Serious: Yes (Hospitalization)
  Sender: FDA-Public Use
  Company Number: JP-ROCHE-461433

PATIENT
  Age: 59 Year
  Sex: Female

DRUGS (1)
  1. PEGASYS [Suspect]
     Route: 058
     Dates: start: 20060515

REACTIONS (1)
  - ABSCESS [None]
